FAERS Safety Report 24142904 (Version 1)
Quarter: 2024Q3

REPORT INFORMATION
  Report Type: Spontaneous
  Country: US (occurrence: None)
  Receive Date: 20240726
  Receipt Date: 20240726
  Transmission Date: 20241016
  Serious: No
  Sender: Public
  Company Number: None

PATIENT
  Age: 54 Year
  Sex: Female

DRUGS (1)
  1. GENOTROPIN [Suspect]
     Active Substance: SOMATROPIN
     Dosage: 0.4 MG DAILY SUBCUTANEOUS ?
     Route: 058

REACTIONS (2)
  - Pain in extremity [None]
  - Pain [None]

NARRATIVE: CASE EVENT DATE: 20240702
